FAERS Safety Report 10275945 (Version 1)
Quarter: 2014Q3

REPORT INFORMATION
  Report Type: Spontaneous
  Country: US (occurrence: None)
  Receive Date: 20140701
  Receipt Date: 20140701
  Transmission Date: 20150326
  Serious: Yes (Hospitalization)
  Sender: FDA-Public Use
  Company Number: None

PATIENT
  Age: 72 Year
  Sex: Male
  Weight: 66.1 kg

DRUGS (3)
  1. METHYLPREDNISOLONE [Suspect]
     Active Substance: METHYLPREDNISOLONE
     Indication: ALLERGIC GRANULOMATOUS ANGIITIS
     Route: 048
     Dates: start: 20140311
  2. METHYLPREDNISOLONE [Suspect]
     Active Substance: METHYLPREDNISOLONE
     Indication: VASCULITIS
     Route: 048
     Dates: start: 20140311
  3. HYDROCORTISONE. [Suspect]
     Active Substance: HYDROCORTISONE
     Indication: PRODUCT USED FOR UNKNOWN INDICATION
     Route: 042
     Dates: start: 20140612, end: 20140613

REACTIONS (7)
  - Delirium [None]
  - Pain [None]
  - Confusional state [None]
  - Mental status changes [None]
  - Insomnia [None]
  - Pyrexia [None]
  - Clostridium difficile infection [None]

NARRATIVE: CASE EVENT DATE: 20140612
